FAERS Safety Report 20329365 (Version 2)
Quarter: 2022Q1

REPORT INFORMATION
  Report Type: Spontaneous
  Country: NZ (occurrence: NZ)
  Receive Date: 20220112
  Receipt Date: 20220304
  Transmission Date: 20220424
  Serious: Yes (Death)
  Sender: FDA-Public Use
  Company Number: NZ-MYLANLABS-2022M1002407

PATIENT
  Sex: Male

DRUGS (4)
  1. CLOZARIL [Suspect]
     Active Substance: CLOZAPINE
     Indication: Schizophrenia
     Dosage: 100 MILLIGRAM (NOCTE)
     Route: 048
     Dates: start: 20110520, end: 20211213
  2. SERTRALINE [Concomitant]
     Active Substance: SERTRALINE HYDROCHLORIDE
     Dosage: UNK
  3. LORAZEPAM [Concomitant]
     Active Substance: LORAZEPAM
     Dosage: UNK
  4. DOCUSATE SODIUM\SENNOSIDES A AND B [Concomitant]
     Active Substance: DOCUSATE SODIUM\SENNOSIDES A AND B
     Dosage: UNK

REACTIONS (1)
  - Metastatic malignant melanoma [Fatal]

NARRATIVE: CASE EVENT DATE: 20150101
